FAERS Safety Report 5870675-9 (Version None)
Quarter: 2008Q3

REPORT INFORMATION
  Report Type: 
  Country: None (occurrence: None)
  Receive Date: 20080904
  Receipt Date: 20080904
  Transmission Date: 20090109
  Serious: Yes (Hospitalization)
  Sender: FDA-Public Use
  Company Number: PHEH1996US08320

PATIENT
  Sex: Female
  Weight: 64.5 kg

DRUGS (6)
  1. NEORAL [Suspect]
     Route: 048
     Dates: start: 19950303, end: 19960228
  2. ACYCLOVIR [Concomitant]
  3. CARDIZEM [Concomitant]
  4. PREDNISONE [Concomitant]
  5. CALCIUM CARBONATE [Concomitant]
  6. ACETAMINOPHEN [Concomitant]

REACTIONS (3)
  - BLOOD CREATININE INCREASED [None]
  - RENAL IMPAIRMENT [None]
  - VIRAL INFECTION [None]
